FAERS Safety Report 4348807-3 (Version None)
Quarter: 2004Q2

REPORT INFORMATION
  Report Type: 
  Country: None (occurrence: None)
  Receive Date: 20040423
  Receipt Date: 20040414
  Transmission Date: 20050107
  Serious: Yes (Hospitalization)
  Sender: FDA-Public Use
  Company Number: 2004209125FR

PATIENT
  Age: 58 Year
  Sex: Female

DRUGS (2)
  1. ALDACTONE [Suspect]
     Dosage: 1 DF, QD, ORAL
     Route: 048
     Dates: end: 20040101
  2. PAROXETINE HCL [Suspect]
     Dosage: 1 DF, QD, ORAL
     Route: 048
     Dates: start: 20031015, end: 20040101

REACTIONS (7)
  - ANOSMIA [None]
  - CONVULSION [None]
  - HEAD INJURY [None]
  - HYPONATRAEMIA [None]
  - LOSS OF CONSCIOUSNESS [None]
  - MENINGORRHAGIA [None]
  - SUBDURAL HAEMATOMA [None]
